FAERS Safety Report 5270156-X (Version None)
Quarter: 2007Q1

REPORT INFORMATION
  Report Type: 
  Country: None (occurrence: None)
  Receive Date: 20070314
  Receipt Date: 20070305
  Transmission Date: 20070707
  Serious: Yes (Death, Hospitalization)
  Sender: FDA-Public Use
  Company Number: 2006-03099

PATIENT
  Age: 82 Year
  Sex: Male

DRUGS (6)
  1. VELCADE [Suspect]
     Indication: MULTIPLE MYELOMA
     Dosage: UNK, UNK, INTRAVENOUS
     Route: 042
     Dates: start: 20060925, end: 20060928
  2. NEURONTIN [Suspect]
     Indication: PROPHYLAXIS
     Dosage: 300.00 MG, UNK, ORAL
     Route: 048
     Dates: start: 20060926, end: 20060929
  3. PERINDOPRIL ERBUMINE [Concomitant]
  4. LASIX [Concomitant]
  5. ALLOPURINOL [Concomitant]
  6. PANCORAN (GLYCERYL TRINITRATE) [Concomitant]

REACTIONS (4)
  - DISEASE PROGRESSION [None]
  - MUSCLE SPASMS [None]
  - MUSCULAR WEAKNESS [None]
  - RENAL FAILURE [None]
